FAERS Safety Report 24286894 (Version 1)
Quarter: 2024Q3

REPORT INFORMATION
  Report Type: Spontaneous
  Country: US (occurrence: None)
  Receive Date: 20240904
  Receipt Date: 20240904
  Transmission Date: 20241016
  Serious: Yes (Other)
  Sender: Public
  Company Number: None

PATIENT
  Age: 39 Year
  Sex: Female
  Weight: 94.5 kg

DRUGS (1)
  1. SEMAGLUTIDE [Suspect]
     Active Substance: SEMAGLUTIDE
     Indication: Weight decreased
     Dosage: ONCE. WEEK SUBCUTANEOUS
     Route: 058
     Dates: start: 20240329, end: 20240903

REACTIONS (2)
  - Sensitive skin [None]
  - Pain [None]

NARRATIVE: CASE EVENT DATE: 20240827
